FAERS Safety Report 5449935-1 (Version None)
Quarter: 2007Q3

REPORT INFORMATION
  Report Type: 
  Country: None (occurrence: None)
  Receive Date: 20070912
  Receipt Date: 20070910
  Transmission Date: 20080115
  Serious: Yes (Other)
  Sender: FDA-Public Use
  Company Number: US-BRISTOL-MYERS SQUIBB COMPANY-13902184

PATIENT
  Age: 14 Year
  Sex: Female

DRUGS (2)
  1. CEPHALEXIN [Suspect]
     Indication: CELLULITIS
  2. DAPSONE [Suspect]
     Indication: CELLULITIS

REACTIONS (1)
  - METHAEMOGLOBINAEMIA [None]
